FAERS Safety Report 9791156 (Version 2)
Quarter: 2014Q2

REPORT INFORMATION
  Report Type: Report from Study
  Country: NL (occurrence: NL)
  Receive Date: 20131231
  Receipt Date: 20140611
  Transmission Date: 20141212
  Serious: Yes (Hospitalization)
  Sender: FDA-Public Use
  Company Number: NL-ABBVIE-13P-114-1183865-00

PATIENT
  Sex: Male

DRUGS (3)
  1. LUCRIN [Suspect]
     Indication: PROSTATE CANCER
     Route: 058
     Dates: start: 20110721
  2. LOSARTAN/HYDROCHLOORTHIAZIDE [Concomitant]
     Indication: PRODUCT USED FOR UNKNOWN INDICATION
     Dosage: 100/25MG
     Route: 048
     Dates: start: 20110804
  3. AMLODIPIN [Concomitant]
     Indication: PRODUCT USED FOR UNKNOWN INDICATION
     Route: 048
     Dates: start: 20110804

REACTIONS (1)
  - Incontinence [Recovered/Resolved]
